FAERS Safety Report 5541417-1 (Version None)
Quarter: 2007Q4

REPORT INFORMATION
  Report Type: 
  Country: None (occurrence: None)
  Receive Date: 20071209
  Receipt Date: 20061213
  Transmission Date: 20080405
  Serious: No
  Sender: FDA-Public Use
  Company Number: US-AMGEN-KDL203641

PATIENT
  Sex: Male

DRUGS (1)
  1. ENBREL [Suspect]
     Indication: JUVENILE ARTHRITIS
     Route: 058
     Dates: start: 20050801

REACTIONS (5)
  - ARTHRALGIA [None]
  - BEDRIDDEN [None]
  - JOINT STIFFNESS [None]
  - MUSCULAR WEAKNESS [None]
  - URINARY INCONTINENCE [None]
